FAERS Safety Report 9188874 (Version 2)
Quarter: 2013Q4

REPORT INFORMATION
  Report Type: Spontaneous
  Country: GB (occurrence: GB)
  Receive Date: 20130326
  Receipt Date: 20131003
  Transmission Date: 20140711
  Serious: Yes (Hospitalization, Other)
  Sender: FDA-Public Use
  Company Number: GB-ROCHE-1205529

PATIENT
  Age: 12 Year
  Sex: Female
  Weight: 39.04 kg

DRUGS (12)
  1. OMALIZUMAB [Suspect]
     Indication: PRODUCT USED FOR UNKNOWN INDICATION
     Route: 058
     Dates: start: 20130205
  2. FLUCLOXACILLIN [Concomitant]
  3. COLOMYCIN [Concomitant]
  4. DORNASE ALFA [Concomitant]
  5. VITAMIN A [Concomitant]
  6. ERGOCALCIFEROL [Concomitant]
  7. VITAMIN E [Concomitant]
  8. CREON [Concomitant]
  9. OMEPRAZOLE [Concomitant]
  10. PREDNISOLONE [Concomitant]
  11. SODIUM CHLORIDE [Concomitant]
  12. CHOLECALCIFEROL [Concomitant]

REACTIONS (3)
  - Haemoptysis [Recovered/Resolved]
  - Haematemesis [Recovered/Resolved]
  - Blood immunoglobulin E increased [Unknown]
